FAERS Safety Report 14251348 (Version 1)
Quarter: 2017Q4

REPORT INFORMATION
  Report Type: Spontaneous
  Country: DE (occurrence: DE)
  Receive Date: 20171205
  Receipt Date: 20171205
  Transmission Date: 20180321
  Serious: Yes (Disabling)
  Sender: FDA-Public Use
  Company Number: DE-ALLERGAN-1764678US

PATIENT
  Age: 47 Year
  Sex: Male

DRUGS (1)
  1. BOTOX [Suspect]
     Active Substance: ONABOTULINUMTOXINA
     Indication: MIGRAINE
     Dosage: 160 UNITS, SINGLE
     Route: 030
     Dates: start: 20170913, end: 20170913

REACTIONS (5)
  - Carotid artery disease [Recovered/Resolved with Sequelae]
  - Carotid artery dissection [Unknown]
  - Language disorder [Recovered/Resolved with Sequelae]
  - Neurological symptom [Recovered/Resolved with Sequelae]
  - Dysphagia [Recovered/Resolved with Sequelae]
